FAERS Safety Report 8956817 (Version 1)
Quarter: 2012Q4

REPORT INFORMATION
  Report Type: 
  Country: US (occurrence: US)
  Receive Date: 20121211
  Receipt Date: 20121211
  Transmission Date: 20130627
  Serious: No
  Sender: FDA-Public Use
  Company Number: US-009507513-1211USA011754

PATIENT
  Sex: Female

DRUGS (2)
  1. JANUVIA [Suspect]
     Dosage: 100 mg, qd
     Route: 048
  2. JANUVIA [Suspect]
     Dosage: 75 mg, qd
     Route: 048

REACTIONS (2)
  - Adverse event [Unknown]
  - Therapy regimen changed [Unknown]
